FAERS Safety Report 8618932-7 (Version None)
Quarter: 2012Q3

REPORT INFORMATION
  Report Type: 
  Country: None (occurrence: None)
  Receive Date: 20120824
  Receipt Date: 20120821
  Transmission Date: 20120928
  Serious: Yes (Death, Hospitalization)
  Sender: FDA-Public Use
  Company Number: CA-SANOFI-AVENTIS-2012SA042242

PATIENT
  Age: 70 Year
  Sex: Male
  Weight: 51.6 kg

DRUGS (9)
  1. TAXOTERE [Suspect]
     Indication: NON-SMALL CELL LUNG CANCER STAGE IV
     Dosage: RECEIVED EVERY THREE WEEKS (DAY 1 OF 21 DAY CYCLE)
     Route: 041
     Dates: start: 20120511, end: 20120511
  2. BISOPROLOL FUMARATE [Concomitant]
     Dates: start: 20110707
  3. METHADONE HYDROCHLORIDE [Concomitant]
     Dates: start: 20120515
  4. POLYETHYLENE GLYCOL [Concomitant]
     Dates: start: 20120501
  5. HYDROMORPHONE HCL [Concomitant]
     Dates: start: 20110729
  6. SENOKOT /UNK/ [Concomitant]
     Dates: start: 20120501
  7. BLINDED THERAPY [Suspect]
     Indication: NON-SMALL CELL LUNG CANCER STAGE IV
     Dosage: RECEIVED EVERY THREE WEEKS (DAY 1 OF 21 DAY CYCLE)
     Route: 042
     Dates: start: 20120511, end: 20120511
  8. HYDROMORPHONE HYDROCHLORIDE [Concomitant]
     Dates: start: 20110707
  9. VITAMIN D [Concomitant]
     Dates: start: 20110929

REACTIONS (1)
  - DISEASE PROGRESSION [None]
